FAERS Safety Report 18469520 (Version 2)
Quarter: 2020Q4

REPORT INFORMATION
  Report Type: Other
  Country: CA (occurrence: CA)
  Receive Date: 20201105
  Receipt Date: 20201124
  Transmission Date: 20210114
  Serious: Yes (Other)
  Sender: FDA-Public Use
  Company Number: CA-ROCHE-2621082

PATIENT
  Age: 52 Year
  Sex: Female

DRUGS (10)
  1. MIRTAZAPINE. [Concomitant]
     Active Substance: MIRTAZAPINE
     Dosage: BEDTIME
     Dates: start: 20201028
  2. GABAPENTIN. [Concomitant]
     Active Substance: GABAPENTIN
  3. OCREVUS [Suspect]
     Active Substance: OCRELIZUMAB
     Indication: PRIMARY PROGRESSIVE MULTIPLE SCLEROSIS
     Dosage: DAY 0, 14 THEN 600 MG Q6M
     Route: 042
     Dates: start: 20191030
  4. PANCREATIC ENZYMES [Concomitant]
     Active Substance: UNSPECIFIED INGREDIENT
  5. TRESIBA [Concomitant]
     Active Substance: INSULIN DEGLUDEC
  6. BUDESONIDE. [Concomitant]
     Active Substance: BUDESONIDE
     Dosage: 3 TABLETS ONCE DAILY FOR BOWEL
  7. NOVORAPID [Concomitant]
     Active Substance: INSULIN ASPART
  8. FLUOXETINE [Concomitant]
     Active Substance: FLUOXETINE HYDROCHLORIDE
  9. ZOMIG [Concomitant]
     Active Substance: ZOLMITRIPTAN
  10. ENTOCORT [Concomitant]
     Active Substance: BUDESONIDE

REACTIONS (7)
  - Diabetes mellitus [Not Recovered/Not Resolved]
  - Migraine [Recovered/Resolved]
  - Seizure [Not Recovered/Not Resolved]
  - Tooth fracture [Recovered/Resolved]
  - Influenza [Not Recovered/Not Resolved]
  - Chest pain [Not Recovered/Not Resolved]
  - Lethargy [Not Recovered/Not Resolved]

NARRATIVE: CASE EVENT DATE: 20200611
